FAERS Safety Report 25769629 (Version 1)
Quarter: 2025Q3

REPORT INFORMATION
  Report Type: Spontaneous
  Country: US (occurrence: US)
  Receive Date: 20250906
  Receipt Date: 20250906
  Transmission Date: 20251021
  Serious: Yes (Other)
  Sender: UCB
  Company Number: US-UCBSA-2025053889

PATIENT
  Weight: 82 kg

DRUGS (7)
  1. BRIVIACT [Suspect]
     Active Substance: BRIVARACETAM
     Indication: Seizure
     Route: 048
  2. BRIVIACT [Suspect]
     Active Substance: BRIVARACETAM
     Route: 048
  3. BRIVIACT [Suspect]
     Active Substance: BRIVARACETAM
     Dosage: 200 MILLIGRAM, 2X/DAY (BID)
     Route: 048
  4. CALCIUM LACTATE\CALCIUM PHOSPHATE\CHOLECALCIFEROL [Concomitant]
     Active Substance: CALCIUM LACTATE\CALCIUM PHOSPHATE\CHOLECALCIFEROL
     Indication: Product used for unknown indication
  5. CARBATROL [Concomitant]
     Active Substance: CARBAMAZEPINE
     Indication: Seizure
     Route: 048
  6. BENZOYL PEROXIDE [Concomitant]
     Active Substance: BENZOYL PEROXIDE
     Indication: Product used for unknown indication
  7. ACETAMINOPHEN [Concomitant]
     Active Substance: ACETAMINOPHEN
     Indication: Product used for unknown indication

REACTIONS (6)
  - Seizure [Unknown]
  - Sedation [Unknown]
  - Fatigue [Unknown]
  - Drug ineffective [Unknown]
  - Product use issue [Unknown]
  - Overdose [Unknown]
